FAERS Safety Report 20893843 (Version 2)
Quarter: 2022Q2

REPORT INFORMATION
  Report Type: Spontaneous
  Country: IT (occurrence: IT)
  Receive Date: 20220531
  Receipt Date: 20220603
  Transmission Date: 20220720
  Serious: Yes (Hospitalization)
  Sender: FDA-Public Use
  Company Number: None

PATIENT
  Age: 69 Year
  Sex: Female

DRUGS (1)
  1. HUMIRA [Suspect]
     Active Substance: ADALIMUMAB
     Indication: Spondylitis
     Route: 058
     Dates: start: 20190615, end: 20220114

REACTIONS (2)
  - Colon neoplasm [Recovered/Resolved with Sequelae]
  - Colectomy [Recovered/Resolved with Sequelae]

NARRATIVE: CASE EVENT DATE: 20210810
